FAERS Safety Report 6011797-1 (Version None)
Quarter: 2008Q4

REPORT INFORMATION
  Report Type: 
  Country: None (occurrence: None)
  Receive Date: 20081218
  Receipt Date: 20080702
  Transmission Date: 20090506
  Serious: No
  Sender: FDA-Public Use
  Company Number: US-ABBOTT-08P-163-0460546-00

PATIENT
  Sex: Female
  Weight: 72.64 kg

DRUGS (1)
  1. MERIDIA [Suspect]
     Indication: WEIGHT DECREASED
     Route: 048
     Dates: start: 20080201, end: 20080629

REACTIONS (3)
  - COUGH [None]
  - NASOPHARYNGITIS [None]
  - RASH GENERALISED [None]
